FAERS Safety Report 6917167-3 (Version None)
Quarter: 2010Q3

REPORT INFORMATION
  Report Type: 
  Country: None (occurrence: None)
  Receive Date: 20100804
  Receipt Date: 20100723
  Transmission Date: 20110219
  Serious: Yes (Hospitalization)
  Sender: FDA-Public Use
  Company Number: LEO-2010-00635

PATIENT
  Age: 72 Year
  Sex: Female

DRUGS (8)
  1. INNOHEP [Suspect]
     Dosage: (18000 IU), SUBCUTANEOUS
     Route: 058
     Dates: start: 20100612, end: 20100617
  2. PREVISCAN (FLUINDIONE) (20 MILLIGRAM, TABLETS) [Suspect]
     Indication: PRODUCT USED FOR UNKNOWN INDICATION
     Dosage: ORAL
     Route: 048
     Dates: end: 20100611
  3. KARDEGIC (ACETYLSALICYLATE LYSINE) (160 MILLIGRAM) [Suspect]
     Indication: PRODUCT USED FOR UNKNOWN INDICATION
     Dosage: ORAL
     Route: 048
     Dates: start: 20100521
  4. ZOCOR (SIMVASTATIN) (40 MILLIGRAM, TABLETS) [Concomitant]
  5. EUPRESSYL (URAPIDIL)(60 MILLIGRAM, CAPSULES) [Concomitant]
  6. TENORMINE (ATENOLOL) (100 MILLIGRAM, TABLETS) [Concomitant]
  7. CORDARONE [Concomitant]
  8. ALDACTONE (SPIRONOLACTONE) (25 MILLIGRAM, TABLETS) [Concomitant]

REACTIONS (3)
  - HAEMATOMA [None]
  - JOINT INJURY [None]
  - OFF LABEL USE [None]
